FAERS Safety Report 16462601 (Version 1)
Quarter: 2019Q2

REPORT INFORMATION
  Report Type: Report from Study
  Country: US (occurrence: US)
  Receive Date: 20190621
  Receipt Date: 20190621
  Transmission Date: 20190711
  Serious: Yes (Other)
  Sender: FDA-Public Use
  Company Number: US-B.I. PHARMACEUTICALS,INC./RIDGEFIELD-2017-BI-003898

PATIENT
  Sex: Female

DRUGS (7)
  1. GILOTRIF [Suspect]
     Active Substance: AFATINIB
     Indication: LUNG NEOPLASM MALIGNANT
     Route: 048
     Dates: start: 201612
  2. VITAMIN B12 [Concomitant]
     Active Substance: CYANOCOBALAMIN
     Indication: PRODUCT USED FOR UNKNOWN INDICATION
     Route: 065
  3. VITAMIN K [Concomitant]
     Active Substance: PHYTONADIONE
     Indication: PRODUCT USED FOR UNKNOWN INDICATION
     Route: 065
  4. GILOTRIF [Suspect]
     Active Substance: AFATINIB
     Indication: NON-SMALL CELL LUNG CANCER
     Route: 048
  5. VITAMIN D3 [Concomitant]
     Active Substance: CHOLECALCIFEROL
     Indication: PRODUCT USED FOR UNKNOWN INDICATION
     Route: 065
  6. VITAMIN D2 [Concomitant]
     Active Substance: ERGOCALCIFEROL
     Indication: PRODUCT USED FOR UNKNOWN INDICATION
     Route: 065
  7. ZINC. [Concomitant]
     Active Substance: ZINC
     Indication: PRODUCT USED FOR UNKNOWN INDICATION
     Route: 065

REACTIONS (17)
  - Nasopharyngitis [Unknown]
  - Oropharyngeal pain [Unknown]
  - Cystitis [Unknown]
  - Withdrawal syndrome [Not Recovered/Not Resolved]
  - Acne [Unknown]
  - Stomatitis [Unknown]
  - Oral herpes [Unknown]
  - Pain [Unknown]
  - Diarrhoea [Unknown]
  - Malignant neoplasm progression [Not Recovered/Not Resolved]
  - Skin disorder [Unknown]
  - Blood pressure increased [Unknown]
  - Injury [Unknown]
  - Neoplasm progression [Unknown]
  - Visual impairment [Recovering/Resolving]
  - Rhinorrhoea [Unknown]
  - Hair disorder [Not Recovered/Not Resolved]
